FAERS Safety Report 7084638-1 (Version None)
Quarter: 2010Q4

REPORT INFORMATION
  Report Type: 
  Country: None (occurrence: None)
  Receive Date: 20101104
  Receipt Date: 20101025
  Transmission Date: 20110411
  Serious: Yes (Hospitalization)
  Sender: FDA-Public Use
  Company Number: PHHY2010FR67717

PATIENT
  Sex: Female
  Weight: 80 kg

DRUGS (6)
  1. RASILEZ [Suspect]
     Indication: HYPERTENSION
     Dosage: 150 MG, DAILY
     Route: 048
  2. ANTIHYPERTENSIVE DRUGS [Concomitant]
  3. CICLETANINE [Concomitant]
     Dosage: 02 DF
     Route: 048
  4. GLIMEPIRIDE [Concomitant]
     Dosage: 04 MG, DAILY
     Route: 048
  5. CLONIDINE [Concomitant]
     Indication: HYPERTENSION
     Dosage: 01 DF, DAILY
     Route: 048
  6. METFORMIN [Concomitant]
     Dosage: 300 MG, TID

REACTIONS (2)
  - FATIGUE [None]
  - HAEMOLYTIC ANAEMIA [None]
